FAERS Safety Report 10141160 (Version 2)
Quarter: 2014Q2

REPORT INFORMATION
  Report Type: Report from Study
  Country: AU (occurrence: AU)
  Receive Date: 20140429
  Receipt Date: 20140429
  Transmission Date: 20141212
  Serious: Yes (Other)
  Sender: FDA-Public Use
  Company Number: AU-SA-2013SA132165

PATIENT
  Age: 48 Year
  Sex: Female

DRUGS (14)
  1. AUBAGIO [Suspect]
     Indication: MULTIPLE SCLEROSIS
     Route: 048
     Dates: start: 20130918, end: 20140403
  2. OXYCONTIN [Concomitant]
  3. ENDONE [Concomitant]
  4. SOMAC [Concomitant]
  5. THYROXIN [Concomitant]
  6. IRON [Concomitant]
     Route: 048
  7. VITAMIN B12 [Concomitant]
  8. ORAL CONTRACEPTIVE NOS [Concomitant]
  9. MOVICOL [Concomitant]
  10. VESICARE [Concomitant]
  11. MIRENA [Concomitant]
  12. JURNISTA [Concomitant]
     Indication: BACK PAIN
  13. NEXIUM [Concomitant]
     Indication: GASTROOESOPHAGEAL REFLUX DISEASE
  14. FRUSEMIDE [Concomitant]
     Indication: PERIPHERAL SWELLING

REACTIONS (12)
  - Rib fracture [Recovering/Resolving]
  - Fall [Recovering/Resolving]
  - Dizziness [Unknown]
  - VIIth nerve paralysis [Recovered/Resolved]
  - Eye disorder [Recovered/Resolved]
  - Tachycardia [Unknown]
  - Heart rate increased [Unknown]
  - Arthralgia [Recovering/Resolving]
  - Liver function test abnormal [Recovering/Resolving]
  - Blood pressure increased [Recovering/Resolving]
  - Multiple sclerosis relapse [Unknown]
  - Alopecia [Not Recovered/Not Resolved]
